FAERS Safety Report 9671921 (Version 3)
Quarter: 2014Q1

REPORT INFORMATION
  Report Type: Report from Study
  Country: BR (occurrence: BR)
  Receive Date: 20131106
  Receipt Date: 20140312
  Transmission Date: 20141002
  Serious: Yes (Hospitalization)
  Sender: FDA-Public Use
  Company Number: BR-ROCHE-1299278

PATIENT
  Sex: Female
  Weight: 99 kg

DRUGS (12)
  1. MABTHERA [Suspect]
     Indication: SJOGREN^S SYNDROME
     Route: 042
     Dates: start: 20130110
  2. MABTHERA [Suspect]
     Indication: RHEUMATOID ARTHRITIS
     Route: 042
     Dates: start: 20130410
  3. RIVOTRIL [Suspect]
     Indication: PANIC DISORDER
     Dosage: HALF A TABLET BEFORE SLEEPING
     Route: 065
  4. SEROQUEL [Concomitant]
  5. METICORTEN [Concomitant]
     Route: 065
  6. DIOVAN [Concomitant]
     Route: 065
  7. MOTILIUM [Concomitant]
     Indication: GASTRIC DISORDER
  8. PONDERA [Concomitant]
     Indication: DEPRESSION
  9. OMEPRAZOLE [Concomitant]
     Route: 065
  10. PURAN T4 [Concomitant]
  11. VIMOVO [Concomitant]
  12. NOVALGINA [Concomitant]
     Indication: PAIN

REACTIONS (8)
  - Eye disorder [Unknown]
  - Dry eye [Unknown]
  - Gastric disorder [Unknown]
  - Thyroid disorder [Unknown]
  - Drug dependence [Unknown]
  - Arthralgia [Unknown]
  - Pain in extremity [Unknown]
  - Joint swelling [Unknown]
